FAERS Safety Report 11054294 (Version 1)
Quarter: 2015Q2

REPORT INFORMATION
  Report Type: Spontaneous
  Country: JP (occurrence: None)
  Receive Date: 20150420
  Receipt Date: 20150420
  Transmission Date: 20150821
  Serious: Yes (Other)
  Sender: FDA-Public Use
  Company Number: SP09238

PATIENT
  Age: 68 Year
  Sex: Male

DRUGS (3)
  1. MOVIPREP [Suspect]
     Active Substance: ASCORBIC ACID\POLYETHYLENE GLYCOL 3350\POTASSIUM CHLORIDE\SODIUM ASCORBATE\SODIUM CHLORIDE\SODIUM SULFATE
     Indication: BOWEL PREPARATION
     Dosage: 2 LIT, ORAL
     Route: 048
     Dates: start: 20150224, end: 20150224
  2. METGLUCO [Concomitant]
     Active Substance: METFORMIN HYDROCHLORIDE
  3. MOSAPRIDE [Concomitant]
     Active Substance: MOSAPRIDE

REACTIONS (4)
  - Hypoglycaemia [None]
  - Cold sweat [None]
  - Blood pressure decreased [None]
  - Feeling abnormal [None]

NARRATIVE: CASE EVENT DATE: 20150224
